FAERS Safety Report 4455232-3 (Version None)
Quarter: 2004Q3

REPORT INFORMATION
  Report Type: 
  Country: None (occurrence: None)
  Receive Date: 20040830
  Receipt Date: 20040414
  Transmission Date: 20050211
  Serious: No
  Sender: FDA-Public Use
  Company Number: 205917

PATIENT
  Age: 71 Year
  Sex: Male
  Weight: 89.8 kg

DRUGS (1)
  1. XOLAIR [Suspect]
     Indication: ASTHMA
     Dosage: 225 MG,Q2W,SUBCUTANEOUS
     Route: 058
     Dates: start: 20040126

REACTIONS (1)
  - ALOPECIA [None]
